FAERS Safety Report 23054370 (Version 1)
Quarter: 2023Q4

REPORT INFORMATION
  Report Type: Spontaneous
  Country: US (occurrence: US)
  Receive Date: 20231011
  Receipt Date: 20231011
  Transmission Date: 20240109
  Serious: No
  Sender: FDA-Public Use
  Company Number: US-LEO Pharma-363700

PATIENT
  Age: 64 Year
  Sex: Female

DRUGS (1)
  1. ADBRY [Suspect]
     Active Substance: TRALOKINUMAB-LDRM
     Indication: Eczema

REACTIONS (4)
  - Fatigue [Recovered/Resolved]
  - Injection site discolouration [Unknown]
  - Carpal tunnel decompression [Unknown]
  - Injection site mass [Unknown]

NARRATIVE: CASE EVENT DATE: 20230928
